FAERS Safety Report 21190561 (Version 1)
Quarter: 2022Q3

REPORT INFORMATION
  Report Type: Spontaneous
  Country: US (occurrence: US)
  Receive Date: 20220809
  Receipt Date: 20220809
  Transmission Date: 20221026
  Serious: No
  Sender: FDA-Public Use
  Company Number: US-BIOVITRUM-2022US09326

PATIENT
  Sex: Female

DRUGS (2)
  1. DOPTELET [Suspect]
     Active Substance: AVATROMBOPAG MALEATE
     Indication: Immune thrombocytopenia
     Dates: start: 20220629
  2. ROMIPLOSTIM [Concomitant]
     Active Substance: ROMIPLOSTIM

REACTIONS (2)
  - Platelet count decreased [Unknown]
  - Drug ineffective [Unknown]
